FAERS Safety Report 18479810 (Version 1)
Quarter: 2020Q4

REPORT INFORMATION
  Report Type: Spontaneous
  Country: DE (occurrence: DE)
  Receive Date: 20201109
  Receipt Date: 20201109
  Transmission Date: 20210114
  Serious: Yes (Death, Other)
  Sender: FDA-Public Use
  Company Number: DE-MICRO LABS LIMITED-ML2020-03305

PATIENT
  Age: 18 Year
  Sex: Female

DRUGS (13)
  1. MDEA (N-METHYLDIETHANOLAMINE) [Suspect]
     Active Substance: METHYL DIETHANOLAMINE
  2. PMMA (PARAMETHOXYMETHAMPHETAMINE) [Suspect]
     Active Substance: 4-METHOXYMETHAMPHETAMINE
  3. METHYLONE [Suspect]
     Active Substance: METHYLPREDNISOLONE
  4. MDA (3,4-METHYLENEDIOXYAMPHETAMINE) [Suspect]
     Active Substance: TENAMFETAMINE
  5. MEPHEDRONE [Suspect]
     Active Substance: MEPHEDRONE
  6. MIRTAZAPINE. [Suspect]
     Active Substance: MIRTAZAPINE
  7. CAFFEINE CITRATE. [Suspect]
     Active Substance: CAFFEINE CITRATE
  8. MDMA (3,4 METHYLENEDIOXYMETHAMPHETAMINE) [Suspect]
     Active Substance: MIDOMAFETAMINE
  9. PMEA (PARA-METHOXY-N-ETHYLAMPHETAMINE) [Suspect]
     Active Substance: 4-METHOXYMETHAMPHETAMINE
  10. AMPHETAMINE [Suspect]
     Active Substance: AMPHETAMINE
  11. METHAMPHETAMINE [Suspect]
     Active Substance: METHAMPHETAMINE
  12. PMA (PARA-METHOXYAMPHETAMINE) [Suspect]
     Active Substance: 4-METHOXYAMPHETAMINE
  13. LIDOCAINE. [Suspect]
     Active Substance: LIDOCAINE

REACTIONS (2)
  - Toxicity to various agents [Fatal]
  - Drug abuse [Unknown]
